FAERS Safety Report 10058206 (Version 1)
Quarter: 2014Q2

REPORT INFORMATION
  Report Type: Spontaneous
  Country: US (occurrence: None)
  Receive Date: 20140402
  Receipt Date: 20140402
  Transmission Date: 20141212
  Serious: Yes (Other)
  Sender: FDA-Public Use
  Company Number: US-ZYDUS-002867

PATIENT
  Age: 53 Year
  Sex: Female

DRUGS (3)
  1. RIBAVIRIN [Suspect]
  2. PEGINTERFERON [Suspect]
  3. TELAPREVIR [Suspect]

REACTIONS (6)
  - Rash [None]
  - Anaemia [None]
  - Ascites [None]
  - Weight increased [None]
  - Therapy responder [None]
  - Viral load increased [None]
